FAERS Safety Report 8053141-4 (Version None)
Quarter: 2011Q4

REPORT INFORMATION
  Report Type: 
  Country: None (occurrence: None)
  Receive Date: 20111213
  Receipt Date: 20110621
  Transmission Date: 20120403
  Serious: No
  Sender: FDA-Public Use
  Company Number: 2011SP029253

PATIENT
  Age: 36 Year
  Sex: Female
  Weight: 164.6557 kg

DRUGS (6)
  1. ZANTAC [Concomitant]
  2. LIPITOR [Concomitant]
  3. SAPHRIS [Suspect]
     Indication: BIPOLAR DISORDER
     Dosage: 5 MG;ONCE;SL
     Route: 060
  4. DEPAKOTE [Concomitant]
  5. ABILIFY [Concomitant]
  6. METFORMIN HCL [Concomitant]

REACTIONS (3)
  - PANIC ATTACK [None]
  - SKIN EXFOLIATION [None]
  - URTICARIA [None]
